FAERS Safety Report 5960109-8 (Version None)
Quarter: 2008Q4

REPORT INFORMATION
  Report Type: 
  Country: None (occurrence: None)
  Receive Date: 20081118
  Receipt Date: 20081118
  Transmission Date: 20090506
  Serious: Yes (Life-Threatening, Hospitalization, Disabling)
  Sender: FDA-Public Use
  Company Number: None

PATIENT
  Age: 66 Year
  Sex: Male
  Weight: 138.3471 kg

DRUGS (1)
  1. CARVEDILOL [Suspect]
     Indication: BLOOD PRESSURE
     Dosage: 25 MG TWICE DAILY PO
     Route: 048
     Dates: start: 20080401, end: 20080810

REACTIONS (14)
  - ASTHENIA [None]
  - ASTHMA [None]
  - CONDITION AGGRAVATED [None]
  - DIARRHOEA [None]
  - DRUG ERUPTION [None]
  - DRY EYE [None]
  - FATIGUE [None]
  - HEART RATE IRREGULAR [None]
  - NASAL DISCOMFORT [None]
  - NASOPHARYNGITIS [None]
  - PRODUCT QUALITY ISSUE [None]
  - SNEEZING [None]
  - TESTICULAR SWELLING [None]
  - WEIGHT INCREASED [None]
